FAERS Safety Report 5080449-7 (Version None)
Quarter: 2006Q3

REPORT INFORMATION
  Report Type: 
  Country: None (occurrence: None)
  Receive Date: 20060815
  Receipt Date: 20060808
  Transmission Date: 20061208
  Serious: Yes (Other)
  Sender: FDA-Public Use
  Company Number: GT-BRISTOL-MYERS SQUIBB COMPANY-13470034

PATIENT
  Sex: Female

DRUGS (1)
  1. ATAZANAVIR [Suspect]
     Dates: end: 20060504

REACTIONS (2)
  - ABORTION SPONTANEOUS [None]
  - PREGNANCY [None]
